FAERS Safety Report 23017951 (Version 1)
Quarter: 2023Q4

REPORT INFORMATION
  Report Type: Spontaneous
  Country: FR (occurrence: FR)
  Receive Date: 20231003
  Receipt Date: 20231003
  Transmission Date: 20240110
  Serious: Yes (Other)
  Sender: FDA-Public Use
  Company Number: None

PATIENT
  Age: 62 Year
  Sex: Male

DRUGS (3)
  1. OSELTAMIVIR [Suspect]
     Active Substance: OSELTAMIVIR
     Indication: Pneumonia influenzal
     Route: 065
     Dates: start: 20230817, end: 20230821
  2. HEPARIN [Suspect]
     Active Substance: HEPARIN SODIUM
     Indication: Infection
     Route: 065
     Dates: start: 20230820, end: 20230825
  3. ZANAMIVIR [Suspect]
     Active Substance: ZANAMIVIR
     Indication: Pneumonia influenzal
     Route: 065
     Dates: start: 20230822, end: 20230830

REACTIONS (1)
  - Liver injury [Recovering/Resolving]

NARRATIVE: CASE EVENT DATE: 20230818
